FAERS Safety Report 5302301-1 (Version None)
Quarter: 2007Q2

REPORT INFORMATION
  Report Type: 
  Country: None (occurrence: None)
  Receive Date: 20070419
  Receipt Date: 20070418
  Transmission Date: 20071010
  Serious: Yes (Other)
  Sender: FDA-Public Use
  Company Number: US-PURDUE-USA_2007_0027058

PATIENT
  Age: 52 Year
  Sex: Male

DRUGS (2)
  1. OXYCONTIN [Suspect]
     Indication: NEURALGIA
     Dosage: 40 MG, BID
  2. OXYIR [Suspect]
     Indication: NEURALGIA
     Dosage: 5 MG, TID

REACTIONS (1)
  - CATARACT [None]
